FAERS Safety Report 9207764 (Version 2)
Quarter: 2013Q4

REPORT INFORMATION
  Report Type: Spontaneous
  Country: US (occurrence: US)
  Receive Date: 20130403
  Receipt Date: 20131231
  Transmission Date: 20140711
  Serious: Yes (Other)
  Sender: FDA-Public Use
  Company Number: US-BAYER-2013-041449

PATIENT
  Age: 33 Year
  Sex: Female

DRUGS (3)
  1. YAZ [Suspect]
     Dosage: UNK
     Dates: start: 200603
  2. YASMIN [Suspect]
     Dosage: UNK
     Dates: start: 200603
  3. CIPROFLOXACIN [Concomitant]
     Dosage: 500 MG, UNK

REACTIONS (6)
  - Gallbladder injury [None]
  - Cholecystitis chronic [None]
  - Pain [None]
  - Injury [None]
  - Fear of disease [None]
  - Pain [None]
